FAERS Safety Report 4487836-6 (Version None)
Quarter: 2004Q4

REPORT INFORMATION
  Report Type: 
  Country: None (occurrence: None)
  Receive Date: 20041028
  Receipt Date: 20041026
  Transmission Date: 20050328
  Serious: Yes (Hospitalization)
  Sender: FDA-Public Use
  Company Number: PHBS2004ES14234

PATIENT
  Sex: Female

DRUGS (5)
  1. PROMETAX [Suspect]
     Indication: DEMENTIA
     Dosage: 3 MG/D
     Route: 048
     Dates: start: 20040616, end: 20040811
  2. ISODIUR [Concomitant]
     Route: 065
     Dates: start: 20030101
  3. DIGOXIN [Concomitant]
     Route: 065
     Dates: start: 20030101
  4. PLAVIX [Concomitant]
     Route: 065
     Dates: start: 20040101
  5. OMEPRAZOLE [Concomitant]
     Route: 065
     Dates: start: 20020101

REACTIONS (1)
  - HEPATITIS [None]
